FAERS Safety Report 14512741 (Version 8)
Quarter: 2022Q3

REPORT INFORMATION
  Report Type: Report from Study
  Country: CA (occurrence: CA)
  Receive Date: 20180209
  Receipt Date: 20220705
  Transmission Date: 20221027
  Serious: Yes (Other)
  Sender: FDA-Public Use
  Company Number: PHHY2018CA017692

PATIENT
  Age: 45 Year
  Sex: Male

DRUGS (3)
  1. COSENTYX [Suspect]
     Active Substance: SECUKINUMAB
     Indication: Psoriasis
     Dosage: 300 MG
     Route: 058
     Dates: start: 20170724, end: 20170821
  2. COSENTYX [Suspect]
     Active Substance: SECUKINUMAB
     Dosage: 300 MG
     Route: 058
     Dates: start: 20170828
  3. PROTOPIC [Concomitant]
     Active Substance: TACROLIMUS
     Indication: Product used for unknown indication
     Dosage: UNK
     Route: 065
     Dates: start: 20210629

REACTIONS (7)
  - Pneumonia [Recovered/Resolved]
  - Peripheral swelling [Recovered/Resolved]
  - Erythema [Recovering/Resolving]
  - Peripheral swelling [Recovering/Resolving]
  - Hypertension [Recovering/Resolving]
  - Hypercholesterolaemia [Not Recovered/Not Resolved]
  - Arthralgia [Recovering/Resolving]

NARRATIVE: CASE EVENT DATE: 20180115
